FAERS Safety Report 7886361-X (Version None)
Quarter: 2011Q4

REPORT INFORMATION
  Report Type: 
  Country: None (occurrence: None)
  Receive Date: 20111102
  Receipt Date: 20110701
  Transmission Date: 20120403
  Serious: No
  Sender: FDA-Public Use
  Company Number: US-AMGEN-USASP2011033853

PATIENT
  Age: 61 Year
  Sex: Male
  Weight: 88.435 kg

DRUGS (7)
  1. ASPIRIN [Concomitant]
     Dosage: 81 MG, UNK
  2. CELEBREX [Concomitant]
     Dosage: 200 MG, UNK
  3. ENBREL [Suspect]
     Indication: PRODUCT USED FOR UNKNOWN INDICATION
     Dosage: 50 MG, QWK
     Route: 058
  4. SIMVASTATIN [Concomitant]
     Dosage: 40 MG, UNK
  5. VITAMIN E [Concomitant]
     Dosage: UNK UNIT, UNK
  6. VITAMIN D [Concomitant]
     Dosage: 1000 UNK, UNK
  7. OMEPRAZOLE [Concomitant]
     Dosage: 20 MG, UNK

REACTIONS (1)
  - CONTUSION [None]
